FAERS Safety Report 16252784 (Version 1)
Quarter: 2019Q2

REPORT INFORMATION
  Report Type: Report from Study
  Country: US (occurrence: US)
  Receive Date: 20190429
  Receipt Date: 20190429
  Transmission Date: 20190711
  Serious: Yes (Other)
  Sender: FDA-Public Use
  Company Number: US-JNJFOC-20190432363

PATIENT
  Sex: Female

DRUGS (1)
  1. STELARA [Suspect]
     Active Substance: USTEKINUMAB
     Indication: PSORIASIS
     Dosage: STRENGTH: 90MG/1ML
     Route: 058
     Dates: start: 201705, end: 201810

REACTIONS (2)
  - Psoriasis [Not Recovered/Not Resolved]
  - Lung adenocarcinoma [Unknown]
